FAERS Safety Report 9479327 (Version 1)
Quarter: 2013Q3

REPORT INFORMATION
  Report Type: Spontaneous
  Country: JP (occurrence: JP)
  Receive Date: 20130827
  Receipt Date: 20130827
  Transmission Date: 20140515
  Serious: Yes (Death)
  Sender: FDA-Public Use
  Company Number: JP-SPECTRUM PHARMACEUTICALS, INC.-13-F-JP-00226

PATIENT
  Sex: 0

DRUGS (3)
  1. FLUOROURACIL [Suspect]
     Indication: OESOPHAGEAL CARCINOMA
     Dosage: 350 MG/M2, CONTINUOUSLY ON DAYS 1-5; REPEATED EVERY 3 WKS
     Route: 042
  2. DOCETAXEL [Suspect]
     Indication: OESOPHAGEAL CARCINOMA
     Dosage: 60 MG/M2, DAY 1; REPEATED EVERY 3 WKS
     Route: 042
  3. CISPLATIN [Suspect]
     Indication: OESOPHAGEAL CARCINOMA
     Dosage: 6 MG/M2, DAYS 1-5; REPEATED EVERY 3 WKS
     Route: 042

REACTIONS (1)
  - Respiratory failure [Fatal]
